FAERS Safety Report 23969304 (Version 1)
Quarter: 2024Q2

REPORT INFORMATION
  Report Type: Spontaneous
  Country: US (occurrence: US)
  Receive Date: 20240612
  Receipt Date: 20240612
  Transmission Date: 20240716
  Serious: Yes (Other)
  Sender: FDA-Public Use
  Company Number: US-JNJFOC-20240609014

PATIENT
  Sex: Male

DRUGS (5)
  1. ABIRATERONE ACETATE [Suspect]
     Active Substance: ABIRATERONE ACETATE
     Indication: Prostate cancer
     Route: 048
     Dates: start: 2021, end: 2022
  2. DOCETAXEL [Suspect]
     Active Substance: DOCETAXEL\DOCETAXEL ANHYDROUS
     Indication: Prostate cancer
     Dosage: 3 CYCLES
     Route: 065
     Dates: start: 2021, end: 2022
  3. TALAZOPARIB TOSYLATE [Suspect]
     Active Substance: TALAZOPARIB TOSYLATE
     Indication: Product used for unknown indication
     Route: 048
  4. TALAZOPARIB [Suspect]
     Active Substance: TALAZOPARIB
     Indication: Product used for unknown indication
     Route: 048
  5. TALAZOPARIB [Suspect]
     Active Substance: TALAZOPARIB
     Dosage: TRIPLE COCKTAIL OF TALAZOPARIB 0.5 MG DAILY
     Route: 048

REACTIONS (2)
  - Prostate sarcoma [Unknown]
  - Toxicity to various agents [Unknown]
